FAERS Safety Report 5171841-0 (Version None)
Quarter: 2006Q4

REPORT INFORMATION
  Report Type: 
  Country: None (occurrence: None)
  Receive Date: 20061205
  Receipt Date: 20061121
  Transmission Date: 20070319
  Serious: Yes (Hospitalization)
  Sender: FDA-Public Use
  Company Number: US018094

PATIENT
  Age: 67 Year
  Sex: Male
  Weight: 73.029 kg

DRUGS (2)
  1. TRISENOX [Suspect]
     Indication: ACUTE MYELOID LEUKAEMIA
     Dosage: 18.257 MG QD INTRAVENOUS DRIP
     Route: 041
     Dates: start: 20060531, end: 20060810
  2. CYTARABINE [Concomitant]

REACTIONS (5)
  - ANAEMIA [None]
  - DERMATITIS [None]
  - NEUTROPHILIA [None]
  - PERIORBITAL OEDEMA [None]
  - SKIN NODULE [None]
